FAERS Safety Report 9409578 (Version 2)
Quarter: 2013Q4

REPORT INFORMATION
  Report Type: Report from Study
  Country: AR (occurrence: AR)
  Receive Date: 20130719
  Receipt Date: 20131010
  Transmission Date: 20140711
  Serious: Yes (Death, Hospitalization, Other)
  Sender: FDA-Public Use
  Company Number: PHHY2013AR075728

PATIENT
  Sex: Male

DRUGS (3)
  1. EXELON PATCH [Suspect]
     Indication: DEMENTIA ALZHEIMER^S TYPE
     Dosage: 4.6 MG (5 CM), DAILY
     Route: 062
  2. DIOVAN [Suspect]
     Indication: BLOOD PRESSURE ABNORMAL
     Dosage: 1 DF (80MG), DAILY
     Route: 048
  3. INFLUENZA VIRUS VACC SEASONAL INN [Suspect]
     Indication: IMMUNISATION
     Dosage: 1 DF

REACTIONS (7)
  - Coma [Fatal]
  - Cerebrovascular accident [Fatal]
  - Hypotonia [Unknown]
  - Grip strength decreased [Unknown]
  - Gait disturbance [Unknown]
  - Influenza [Unknown]
  - Pyrexia [Unknown]
